FAERS Safety Report 7702895-2 (Version None)
Quarter: 2011Q3

REPORT INFORMATION
  Report Type: 
  Country: None (occurrence: None)
  Receive Date: 20110823
  Receipt Date: 20110808
  Transmission Date: 20111222
  Serious: No
  Sender: FDA-Public Use
  Company Number: US-B.I. PHARMACEUTICALS,INC./RIDGEFIELD-2011-BP-19433BP

PATIENT
  Sex: Female

DRUGS (6)
  1. TAMBOCOR [Concomitant]
     Indication: ATRIAL FIBRILLATION
     Dosage: 200 MG
     Route: 048
     Dates: start: 20010101
  2. DIOVAN [Concomitant]
     Indication: ATRIAL FIBRILLATION
     Dosage: 320 MG
     Route: 048
     Dates: start: 20010101
  3. MACRODANTIN [Concomitant]
     Indication: URINARY TRACT INFECTION
     Dosage: 50 MG
     Route: 048
     Dates: start: 20100101
  4. LIPITOR [Concomitant]
     Indication: BLOOD CHOLESTEROL INCREASED
     Dosage: 40 MG
     Route: 048
     Dates: start: 20010101
  5. PRADAXA [Suspect]
     Indication: ATRIAL FIBRILLATION
     Dosage: 300 MG
     Route: 048
     Dates: start: 20101101, end: 20110601
  6. HYDROCHLOROTHIAZIDE [Concomitant]
     Indication: HYPERTENSION
     Dosage: 25 MG
     Route: 048
     Dates: start: 20010101

REACTIONS (1)
  - MUSCLE SPASMS [None]
